FAERS Safety Report 11704621 (Version 5)
Quarter: 2018Q1

REPORT INFORMATION
  Report Type: Report from Study
  Country: ES (occurrence: ES)
  Receive Date: 20151106
  Receipt Date: 20180201
  Transmission Date: 20180508
  Serious: Yes (Hospitalization)
  Sender: FDA-Public Use
  Company Number: ES-AMGEN-ESPSL2015117043

PATIENT
  Sex: Male

DRUGS (1)
  1. NPLATE [Suspect]
     Active Substance: ROMIPLOSTIM
     Indication: IMMUNE THROMBOCYTOPENIC PURPURA
     Dosage: 250 MCG, Q2WK
     Route: 058
     Dates: start: 20150310

REACTIONS (2)
  - Cardiac disorder [Unknown]
  - Venous occlusion [Unknown]

NARRATIVE: CASE EVENT DATE: 2015
